FAERS Safety Report 8521366-7 (Version None)
Quarter: 2012Q3

REPORT INFORMATION
  Report Type: 
  Country: None (occurrence: None)
  Receive Date: 20120719
  Receipt Date: 20120510
  Transmission Date: 20120928
  Serious: No
  Sender: FDA-Public Use
  Company Number: US-009507513-1207USA006393

PATIENT

DRUGS (1)
  1. DR. SCHOLLS LIQUID CORN CALLUS REMOVER [Suspect]
     Indication: HYPERKERATOSIS
     Dosage: UNK, UNKNOWN
     Route: 061
     Dates: start: 20120301, end: 20120401

REACTIONS (2)
  - SKIN DISCOLOURATION [None]
  - CONDITION AGGRAVATED [None]
